FAERS Safety Report 8077072-9 (Version None)
Quarter: 2012Q1

REPORT INFORMATION
  Report Type: 
  Country: None (occurrence: None)
  Receive Date: 20120127
  Receipt Date: 20120118
  Transmission Date: 20120608
  Serious: Yes (Hospitalization, Other)
  Sender: FDA-Public Use
  Company Number: US-EISAI INC-E3810-05252-SPO-US

PATIENT
  Sex: Female

DRUGS (4)
  1. FENTANYL [Concomitant]
     Indication: PAIN
  2. BUPROPION HYDROCHLORIDE [Concomitant]
     Indication: DEPRESSION
     Dosage: UNKNOWN
  3. FENTANYL MATRIX [Concomitant]
  4. ACIPHEX [Suspect]
     Dosage: UNKNOWN
     Route: 048

REACTIONS (14)
  - ARTHRITIS [None]
  - FRUSTRATION [None]
  - BODY HEIGHT DECREASED [None]
  - NEUROPATHY PERIPHERAL [None]
  - BEDRIDDEN [None]
  - COMPLICATED FRACTURE [None]
  - DECREASED ACTIVITY [None]
  - HAEMATEMESIS [None]
  - GAIT DISTURBANCE [None]
  - BLOOD PRESSURE INCREASED [None]
  - DEPRESSION [None]
  - MENISCUS LESION [None]
  - PAIN [None]
  - FIBROMYALGIA [None]
